FAERS Safety Report 16871193 (Version 1)
Quarter: 2019Q3

REPORT INFORMATION
  Report Type: Report from Study
  Country: None (occurrence: US)
  Receive Date: 20190930
  Receipt Date: 20190930
  Transmission Date: 20191005
  Serious: Yes (Hospitalization, Other)
  Sender: FDA-Public Use
  Company Number: US-ABBVIE-19K-163-2912525-00

PATIENT
  Age: 72 Year
  Sex: Female
  Weight: 138.47 kg

DRUGS (1)
  1. HUMIRA [Suspect]
     Active Substance: ADALIMUMAB
     Indication: PSORIASIS
     Route: 058
     Dates: start: 2016, end: 201811

REACTIONS (12)
  - Gingivitis [Recovered/Resolved]
  - Knee operation [Unknown]
  - Lymphoedema [Not Recovered/Not Resolved]
  - Arthritis bacterial [Unknown]
  - Mouth ulceration [Recovered/Resolved]
  - Lymphoma [Unknown]
  - Psoriasis [Unknown]
  - Dental implantation [Recovered/Resolved]
  - Joint swelling [Recovering/Resolving]
  - Cellulitis [Unknown]
  - Arthritis infective [Recovered/Resolved]
  - Arthritis infective [Not Recovered/Not Resolved]

NARRATIVE: CASE EVENT DATE: 201811
